FAERS Safety Report 25869533 (Version 1)
Quarter: 2025Q4

REPORT INFORMATION
  Report Type: Report from Study
  Country: BR (occurrence: BR)
  Receive Date: 20251001
  Receipt Date: 20251001
  Transmission Date: 20260117
  Serious: Yes (Hospitalization, Other)
  Sender: BAYER HEALTHCARE PHARMACEUTICALS INC.
  Company Number: BR-BAYER-2025A118399

PATIENT
  Age: 67 Year
  Sex: Male

DRUGS (1)
  1. STIVARGA [Suspect]
     Active Substance: REGORAFENIB MONOHYDRATE
     Indication: Colorectal cancer
     Dosage: UNK
     Dates: end: 202505

REACTIONS (5)
  - Oesophagitis [None]
  - Stomatitis [None]
  - Mouth injury [None]
  - Oesophageal injury [None]
  - Colon cancer metastatic [None]

NARRATIVE: CASE EVENT DATE: 20250501
